FAERS Safety Report 9754651 (Version 1)
Quarter: 2013Q4

REPORT INFORMATION
  Report Type: Spontaneous
  Country: US (occurrence: US)
  Receive Date: 20131213
  Receipt Date: 20131213
  Transmission Date: 20140711
  Serious: No
  Sender: FDA-Public Use
  Company Number: US-GLAXOSMITHKLINE-A1003317A

PATIENT
  Age: 55 Year
  Sex: Female

DRUGS (5)
  1. NICODERM CQ CLEAR 21MG [Suspect]
     Indication: SMOKING CESSATION THERAPY
     Route: 062
     Dates: start: 201204
  2. IODINE 131 [Concomitant]
     Route: 048
  3. SLEEPING PILLS [Concomitant]
  4. OXYCODONE [Concomitant]
  5. BETA BLOCKER [Concomitant]
     Indication: HYPERTENSION

REACTIONS (2)
  - Drug ineffective [Recovered/Resolved]
  - Crying [Unknown]
